FAERS Safety Report 11281491 (Version 2)
Quarter: 2016Q3

REPORT INFORMATION
  Report Type: Report from Study
  Country: CA (occurrence: CA)
  Receive Date: 20150717
  Receipt Date: 20160725
  Transmission Date: 20161109
  Serious: Yes (Hospitalization, Other)
  Sender: FDA-Public Use
  Company Number: CA-UCBSA-2015023068

PATIENT
  Age: 65 Year
  Sex: Female
  Weight: 86 kg

DRUGS (2)
  1. CERTOLIZUMAB PEGOL RA [Suspect]
     Active Substance: CERTOLIZUMAB PEGOL
     Indication: RHEUMATOID ARTHRITIS
     Dosage: 200 MG, EV 2 WEEKS(QOW)
     Route: 058
     Dates: start: 20130207, end: 20130808
  2. CERTOLIZUMAB PEGOL RA [Suspect]
     Active Substance: CERTOLIZUMAB PEGOL
     Dosage: 200 MG, EV 2 WEEKS(QOW)
     Route: 058
     Dates: start: 20140228, end: 20140714

REACTIONS (3)
  - Abdominal abscess [Recovering/Resolving]
  - Pericarditis [Recovering/Resolving]
  - Cardiac tamponade [Recovering/Resolving]

NARRATIVE: CASE EVENT DATE: 20140714
